FAERS Safety Report 7503042-2 (Version None)
Quarter: 2011Q2

REPORT INFORMATION
  Report Type: 
  Country: None (occurrence: None)
  Receive Date: 20110525
  Receipt Date: 20110516
  Transmission Date: 20111010
  Serious: Yes (Hospitalization)
  Sender: FDA-Public Use
  Company Number: DE-ASTRAZENECA-2011SE29796

PATIENT
  Sex: Female

DRUGS (4)
  1. TRANQUILIZER [Concomitant]
  2. SEROQUEL [Suspect]
     Route: 048
  3. ANTI-DEPRESSIVE MEDICATION [Concomitant]
  4. FUROSEMIDE [Concomitant]

REACTIONS (3)
  - SYNCOPE [None]
  - CIRCULATORY COLLAPSE [None]
  - BRADYCARDIA [None]
